FAERS Safety Report 24115778 (Version 1)
Quarter: 2024Q3

REPORT INFORMATION
  Report Type: Spontaneous
  Country: DE (occurrence: DE)
  Receive Date: 20240721
  Receipt Date: 20240721
  Transmission Date: 20241016
  Serious: Yes (Other)
  Sender: DR REDDYS
  Company Number: DE-GERMAN-LIT/DEU/24/0010388

PATIENT

DRUGS (1)
  1. SORAFENIB [Suspect]
     Active Substance: SORAFENIB
     Indication: Acute myeloid leukaemia
     Dosage: AT A DOSE OF UP TO 400 MG TWICE DAILY AS RECOMMENDED IN THE MANUFACTURER^S INFORMATION

REACTIONS (2)
  - Electrocardiogram T wave abnormal [Recovered/Resolved]
  - Product use in unapproved indication [Unknown]
